FAERS Safety Report 8510992 (Version 2)
Quarter: 2016Q2

REPORT INFORMATION
  Report Type: Report from Study
  Country: RU (occurrence: RU)
  Receive Date: 20120413
  Receipt Date: 20160510
  Transmission Date: 20160815
  Serious: Yes (Hospitalization)
  Sender: FDA-Public Use
  Company Number: PHHO2011RU021903

PATIENT
  Age: 73 Year
  Sex: Male
  Weight: 83.1 kg

DRUGS (8)
  1. ALISKIREN [Suspect]
     Active Substance: ALISKIREN
     Indication: CARDIAC FAILURE
     Dosage: 300 MG, UNK
     Route: 048
     Dates: start: 20101005
  2. SIMVASTATIN. [Concomitant]
     Active Substance: SIMVASTATIN
     Indication: ANGINA PECTORIS
     Dosage: 10 MG, QD
     Route: 048
     Dates: start: 20101019
  3. ISOSORBIDE DINITRATE. [Concomitant]
     Active Substance: ISOSORBIDE DINITRATE
     Indication: ANGINA PECTORIS
     Dosage: 20 MG, BID
     Route: 048
     Dates: start: 20100722, end: 20110926
  4. BISOPROLOL [Suspect]
     Active Substance: BISOPROLOL
     Indication: CARDIAC FAILURE CHRONIC
     Dosage: 10 MG, QD
     Route: 048
     Dates: start: 20110428, end: 20110926
  5. FUROSEMIDE. [Concomitant]
     Active Substance: FUROSEMIDE
     Indication: CARDIAC FAILURE CHRONIC
     Dosage: 40 MG, QD
     Route: 048
     Dates: start: 20100726
  6. THROMBO AS [Concomitant]
     Indication: ANGINA PECTORIS
     Dosage: 100 MG, QD
     Route: 048
     Dates: start: 20100727
  7. DIGOXIN. [Suspect]
     Active Substance: DIGOXIN
     Indication: PRODUCT USED FOR UNKNOWN INDICATION
     Dosage: 0.025 MG, QD
     Route: 048
     Dates: start: 20100727, end: 20110926
  8. ENALAPRIL [Suspect]
     Active Substance: ENALAPRIL
     Indication: CARDIAC FAILURE
     Dosage: 10 MG, BID
     Route: 048
     Dates: start: 20101005

REACTIONS (2)
  - Atrial fibrillation [Recovered/Resolved]
  - Bradycardia [Recovered/Resolved]

NARRATIVE: CASE EVENT DATE: 20110927
